FAERS Safety Report 9702825 (Version 1)
Quarter: 2013Q4

REPORT INFORMATION
  Report Type: Spontaneous
  Country: CI (occurrence: CI)
  Receive Date: 20131121
  Receipt Date: 20131121
  Transmission Date: 20140711
  Serious: Yes (Death)
  Sender: FDA-Public Use
  Company Number: CI-GLAXOSMITHKLINE-B0946029A

PATIENT
  Age: 40 Year
  Sex: Female

DRUGS (1)
  1. DEROXAT [Suspect]
     Indication: MENTAL DISORDER
     Dosage: 20MG PER DAY
     Route: 065

REACTIONS (1)
  - Cardiac arrest [Fatal]
